FAERS Safety Report 21794717 (Version 1)
Quarter: 2022Q4

REPORT INFORMATION
  Report Type: Spontaneous
  Country: US (occurrence: US)
  Receive Date: 20221229
  Receipt Date: 20221229
  Transmission Date: 20230112
  Serious: Yes (Hospitalization)
  Sender: FDA-Public Use
  Company Number: US-BAYER-2022P033044

PATIENT
  Sex: Female

DRUGS (4)
  1. GENUINE BAYER ASPIRIN [Suspect]
     Active Substance: ASPIRIN
     Dosage: 1 DF, QD
  2. GENUINE BAYER ASPIRIN [Suspect]
     Active Substance: ASPIRIN
     Dosage: 325 MG, BID
  3. TIROFIBAN [Concomitant]
     Active Substance: TIROFIBAN
     Dosage: UNK, BID
  4. HEPARIN [Concomitant]
     Active Substance: HEPARIN SODIUM
     Dosage: UNK, BID

REACTIONS (2)
  - Contraindicated product administered [None]
  - Haematuria [None]
